FAERS Safety Report 5705802-7 (Version None)
Quarter: 2008Q2

REPORT INFORMATION
  Report Type: 
  Country: None (occurrence: None)
  Receive Date: 20080415
  Receipt Date: 20080401
  Transmission Date: 20081010
  Serious: Yes (Other)
  Sender: FDA-Public Use
  Company Number: US-BAUSCH-2007BL004452

PATIENT
  Age: 38 Year
  Sex: Female
  Weight: 104 kg

DRUGS (3)
  1. NEOMYCIN AND POLYMXIN B SULFATES AND HYDROCORTISONE [Suspect]
     Route: 047
     Dates: start: 20061019, end: 20061019
  2. TENORMIN /NEZ/ [Concomitant]
  3. PAXIL [Concomitant]

REACTIONS (11)
  - ABNORMAL SENSATION IN EYE [None]
  - ASTIGMATISM [None]
  - CHEMICAL INJURY [None]
  - CORNEAL ABRASION [None]
  - DRUG DISPENSING ERROR [None]
  - DRUG TOXICITY [None]
  - INCORRECT ROUTE OF DRUG ADMINISTRATION [None]
  - MEDICATION ERROR [None]
  - MYOPIA [None]
  - SENSATION OF FOREIGN BODY [None]
  - VISUAL ACUITY REDUCED [None]
